FAERS Safety Report 8974210 (Version 6)
Quarter: 2015Q1

REPORT INFORMATION
  Report Type: Spontaneous
  Country: JP (occurrence: None)
  Receive Date: 20121213
  Receipt Date: 20150309
  Transmission Date: 20150721
  Serious: Yes (Hospitalization, Disabling)
  Sender: FDA-Public Use
  Company Number: 2009JP007232

PATIENT
  Age: 28 Year
  Sex: Female
  Weight: 46 kg

DRUGS (20)
  1. BAYASPIRIN (ACETYLSALICYLIC ACID) [Concomitant]
  2. ASPARA-CA (ASPARTATE CALCIUM) [Concomitant]
  3. FUNGIZONE (AMPHOTERICIN B) SYRUP [Concomitant]
  4. LORFENAMIN (LOXOPROFEN SODIUM) [Concomitant]
  5. SOLU-MEDROL [Suspect]
     Active Substance: METHYLPREDNISOLONE SODIUM SUCCINATE
     Indication: RASH
     Dosage: IV NOS.
     Route: 042
  6. SLOW-FE (FERROUS SULFATE) [Concomitant]
  7. ENDOXAN  (CYCLOPHOSPHAMIDE) [Concomitant]
     Active Substance: CYCLOPHOSPHAMIDE
  8. PROGRAF [Suspect]
     Active Substance: TACROLIMUS\TACROLIMUS ANHYDROUS
     Indication: RHEUMATOID ARTHRITIS
     Route: 048
     Dates: start: 20090327, end: 20090402
  9. BONALON (ALENDRONATE SODIUM) [Concomitant]
  10. METHYCOBAL (MECOBALAMIN) [Concomitant]
  11. BLOSTAR M (FAMOTIDINE) [Concomitant]
  12. PREDNISOLONE. [Suspect]
     Active Substance: PREDNISOLONE
     Indication: LUPUS NEPHRITIS
     Route: 048
     Dates: end: 20090401
  13. PREDONINE  (PREDNISOLONE SODIUM SUCCINATE) [Concomitant]
  14. PROGRAF [Suspect]
     Active Substance: TACROLIMUS\TACROLIMUS ANHYDROUS
     Indication: LUPUS NEPHRITIS
     Route: 048
     Dates: start: 20090327, end: 20090402
  15. DEPAS (ETIZOLAM) [Concomitant]
  16. ITRIZOLE (ITRACONAZOLE) [Concomitant]
  17. BREDININ (MIZORIBINE) [Concomitant]
     Active Substance: MIZORIBINE
  18. HYALEIN (HYALURONATE SODIUM) [Concomitant]
  19. BACTRAMIN (SULFAMETHOXAZOLE, TRIMETHOPRIM) [Concomitant]
  20. MUCOSTA (REBAMIPIDE) [Concomitant]

REACTIONS (10)
  - Intracranial hypotension [None]
  - Osteonecrosis [None]
  - Palpitations [None]
  - Pruritus [None]
  - Paraesthesia [None]
  - Transplant [None]
  - Rash [None]
  - Anxiety disorder [None]
  - Pruritus generalised [None]
  - Death of relative [None]

NARRATIVE: CASE EVENT DATE: 20090402
